FAERS Safety Report 6973703-2 (Version None)
Quarter: 2010Q3

REPORT INFORMATION
  Report Type: 
  Country: None (occurrence: None)
  Receive Date: 20100909
  Receipt Date: 20100901
  Transmission Date: 20110219
  Serious: Yes (Other)
  Sender: FDA-Public Use
  Company Number: US-AMGEN-KDL436032

PATIENT
  Sex: Female
  Weight: 91.3 kg

DRUGS (9)
  1. PROCRIT [Suspect]
     Indication: ANAEMIA
     Dates: start: 20100701, end: 20100819
  2. PEGASYS [Concomitant]
  3. COPEGUS [Concomitant]
  4. ALBUTEROL SULATE [Concomitant]
  5. PROPRANOLOL [Concomitant]
  6. DARVOCET-N 100 [Concomitant]
  7. LYRICA [Concomitant]
  8. MULTI-VITAMINS [Concomitant]
  9. VITAMIN B-12 [Concomitant]

REACTIONS (4)
  - DYSPNOEA [None]
  - PHARYNGEAL OEDEMA [None]
  - PRURITUS [None]
  - URTICARIA [None]
